FAERS Safety Report 4931462-9 (Version None)
Quarter: 2006Q1

REPORT INFORMATION
  Report Type: 
  Country: None (occurrence: None)
  Receive Date: 20060303
  Receipt Date: 20060223
  Transmission Date: 20060701
  Serious: Yes (Hospitalization)
  Sender: FDA-Public Use
  Company Number: US-KINGPHARMUSA00001-K200600258

PATIENT
  Age: 73 Year
  Sex: Male

DRUGS (10)
  1. ALTACE [Suspect]
     Dosage: 1.25 MG, QD
     Route: 048
  2. LOGIMAX [Suspect]
     Dosage: 47.5 MG+ 5 MG, QD
     Route: 048
  3. ALDACTONE [Suspect]
     Dosage: 2.5 U, QD
     Route: 048
  4. MODAMIDE [Suspect]
     Dosage: 2 U, QD
     Route: 048
  5. KARDEGIC [Suspect]
     Dosage: 1 U, QD
     Route: 048
  6. GLEEVEC [Suspect]
     Indication: CHRONIC MYELOID LEUKAEMIA
     Dosage: 400 MG, QD
     Route: 048
     Dates: start: 20050411
  7. URION ^ZAMBON^ [Suspect]
  8. MAG 2 [Suspect]
  9. NUCTALON [Suspect]
  10. DIFFU K [Suspect]

REACTIONS (6)
  - DRUG ERUPTION [None]
  - HYPERKERATOSIS [None]
  - MYCOSIS FUNGOIDES [None]
  - PRURITUS [None]
  - RASH ERYTHEMATOUS [None]
  - RASH PAPULAR [None]
